FAERS Safety Report 18422641 (Version 2)
Quarter: 2020Q4

REPORT INFORMATION
  Report Type: Spontaneous
  Country: US (occurrence: US)
  Receive Date: 20201023
  Receipt Date: 20201027
  Transmission Date: 20210114
  Serious: Yes (Other)
  Sender: FDA-Public Use
  Company Number: US-PFIZER INC-2020409841

PATIENT
  Age: 64 Year
  Sex: Female

DRUGS (1)
  1. ATORVASTATIN CALCIUM. [Suspect]
     Active Substance: ATORVASTATIN CALCIUM
     Dosage: 20 MG, 1X/DAY

REACTIONS (6)
  - Product coating issue [Unknown]
  - Vomiting [Unknown]
  - Autoimmune disorder [Unknown]
  - Ulcer [Unknown]
  - Poor quality product administered [Unknown]
  - Gastrooesophageal reflux disease [Unknown]
